FAERS Safety Report 4907366-4 (Version None)
Quarter: 2006Q1

REPORT INFORMATION
  Report Type: 
  Country: None (occurrence: None)
  Receive Date: 20060208
  Receipt Date: 20060208
  Transmission Date: 20060701
  Serious: Yes (Life-Threatening, Hospitalization, Other)
  Sender: FDA-Public Use
  Company Number: None

PATIENT
  Age: 6 Month
  Sex: Male
  Weight: 8.1647 kg

DRUGS (2)
  1. PROTOPIC [Suspect]
     Indication: ECZEMA
     Dosage: THIN LAYER ON AFFECTED AREAS DAILY FOR 6 WEEKS TOP 6 MONTHS TO 1 YEAR
     Route: 061
     Dates: start: 20020301, end: 20021101
  2. PROTOPIC [Suspect]
     Indication: ECZEMA
     Dosage: THIN LAYER ON AFFECTED AREAS THEN WHEN NEEDED TOP 6 MONTHS TO 1 YEAR
     Route: 061
     Dates: start: 20020401, end: 20021101

REACTIONS (2)
  - ADRENAL CARCINOMA [None]
  - NEUROBLASTOMA [None]
